FAERS Safety Report 6769134-0 (Version None)
Quarter: 2010Q2

REPORT INFORMATION
  Report Type: 
  Country: None (occurrence: None)
  Receive Date: 20100615
  Receipt Date: 20100420
  Transmission Date: 20101027
  Serious: Yes (Other)
  Sender: FDA-Public Use
  Company Number: US-BAYER-201011738NA

PATIENT
  Age: 40 Year
  Sex: Female
  Weight: 124 kg

DRUGS (7)
  1. YASMIN [Suspect]
     Indication: MENSTRUAL CYCLE MANAGEMENT
     Route: 048
     Dates: start: 20060909, end: 20080719
  2. OCELLA [Suspect]
     Indication: MENSTRUAL CYCLE MANAGEMENT
     Route: 048
     Dates: start: 20080720, end: 20090815
  3. RELAFEN [Concomitant]
     Route: 065
     Dates: start: 20070124, end: 20091029
  4. PHENTERMINE [Concomitant]
  5. LORCET-HD [Concomitant]
  6. ALLI [Concomitant]
     Route: 065
  7. SOMA [Concomitant]
     Route: 065

REACTIONS (6)
  - ABDOMINAL PAIN [None]
  - BILIARY DYSKINESIA [None]
  - CHOLECYSTITIS CHRONIC [None]
  - DYSPEPSIA [None]
  - NAUSEA [None]
  - VOMITING [None]
